FAERS Safety Report 10907323 (Version 1)
Quarter: 2015Q1

REPORT INFORMATION
  Report Type: Spontaneous
  Country: US (occurrence: None)
  Receive Date: 20150309
  Receipt Date: 20150309
  Transmission Date: 20150721
  Serious: Yes (Hospitalization, Other)
  Sender: FDA-Public Use
  Company Number: None

PATIENT
  Age: 51 Year
  Sex: Female

DRUGS (9)
  1. TEMAZEPAM. [Concomitant]
     Active Substance: TEMAZEPAM
  2. AMPYRA [Suspect]
     Active Substance: DALFAMPRIDINE
     Indication: MULTIPLE SCLEROSIS
     Route: 048
     Dates: start: 201210, end: 201303
  3. TEMAZEPAM. [Concomitant]
     Active Substance: TEMAZEPAM
  4. VENLAFAXINE [Concomitant]
     Active Substance: VENLAFAXINE HYDROCHLORIDE
  5. GABAPENTIN. [Concomitant]
     Active Substance: GABAPENTIN
  6. RIBIF [Concomitant]
  7. NORCO [Concomitant]
     Active Substance: ACETAMINOPHEN\HYDROCODONE BITARTRATE
  8. CLONAZEPAM. [Concomitant]
     Active Substance: CLONAZEPAM
  9. ZOLIPIDEM [Concomitant]

REACTIONS (5)
  - Back pain [None]
  - Pneumonia aspiration [None]
  - Pain in extremity [None]
  - Seizure [None]
  - Epilepsy [None]

NARRATIVE: CASE EVENT DATE: 20130328
